FAERS Safety Report 14502645 (Version 4)
Quarter: 2018Q1

REPORT INFORMATION
  Report Type: Spontaneous
  Country: PL (occurrence: PL)
  Receive Date: 20180208
  Receipt Date: 20180227
  Transmission Date: 20180509
  Serious: Yes (Other)
  Sender: FDA-Public Use
  Company Number: PL-ALVOGEN-2018-ALVOGEN-095011

PATIENT
  Age: 59 Year
  Sex: Female

DRUGS (4)
  1. MEROPENEM. [Suspect]
     Active Substance: MEROPENEM
     Indication: NECROTISING FASCIITIS
  2. OCTENIDINE HYDROCHLORIDE/PHENOXYETHANOL [Concomitant]
     Indication: SKIN LESION
  3. CLINDAMYCIN. [Suspect]
     Active Substance: CLINDAMYCIN
     Indication: NECROTISING FASCIITIS
  4. LINEZOLID. [Suspect]
     Active Substance: LINEZOLID
     Indication: NECROTISING FASCIITIS
     Dosage: (2MG/ML)

REACTIONS (1)
  - Drug ineffective [Unknown]
